FAERS Safety Report 6531639-5 (Version None)
Quarter: 2010Q1

REPORT INFORMATION
  Report Type: 
  Country: None (occurrence: None)
  Receive Date: 20100108
  Receipt Date: 20100101
  Transmission Date: 20100710
  Serious: Yes (Death, Hospitalization, Other)
  Sender: FDA-Public Use
  Company Number: US-ROCHE-678006

PATIENT

DRUGS (3)
  1. BEVACIZUMAB [Suspect]
     Dosage: FREQ: 30-90 MIN ON DAYS 1 AND 15
     Route: 042
     Dates: start: 20090910
  2. BAY 43-9006 [Suspect]
     Dosage: FREQ: BID ON DAYS 1-5,8-12,15-19 AND 22-26
     Route: 048
     Dates: start: 20090910
  3. SUTENT [Concomitant]

REACTIONS (6)
  - ALANINE AMINOTRANSFERASE INCREASED [None]
  - ASPARTATE AMINOTRANSFERASE INCREASED [None]
  - BLOOD SODIUM DECREASED [None]
  - DISEASE PROGRESSION [None]
  - HAEMOGLOBIN DECREASED [None]
  - LEFT VENTRICULAR DYSFUNCTION [None]
